FAERS Safety Report 5897710-6 (Version None)
Quarter: 2008Q3

REPORT INFORMATION
  Report Type: 
  Country: None (occurrence: None)
  Receive Date: 20080919
  Receipt Date: 20080821
  Transmission Date: 20090109
  Serious: No
  Sender: FDA-Public Use
  Company Number: US-WYE-H05677608

PATIENT
  Age: 61 Year
  Sex: Female
  Weight: 90.8 kg

DRUGS (4)
  1. PRISTIQ [Suspect]
     Indication: DEPRESSION
     Dosage: 50 MG 1X PER 1 DAY, ORAL
     Route: 048
     Dates: start: 20080815
  2. CLONAZEPAM [Concomitant]
  3. ABILIFY [Concomitant]
  4. PROPRANOLOL [Concomitant]

REACTIONS (3)
  - HEADACHE [None]
  - HYPERHIDROSIS [None]
  - NERVOUSNESS [None]
